FAERS Safety Report 9834674 (Version 2)
Quarter: 2014Q1

REPORT INFORMATION
  Report Type: Spontaneous
  Country: DE (occurrence: DE)
  Receive Date: 20140122
  Receipt Date: 20140122
  Transmission Date: 20141002
  Serious: Yes (Hospitalization, Disabling)
  Sender: FDA-Public Use
  Company Number: DE-JNJFOC-20140100224

PATIENT
  Age: 82 Year
  Sex: Female

DRUGS (15)
  1. XARELTO [Suspect]
     Indication: CEREBROVASCULAR ACCIDENT PROPHYLAXIS
     Route: 048
     Dates: start: 201211, end: 20131129
  2. XARELTO [Suspect]
     Indication: ATRIAL FIBRILLATION
     Route: 048
     Dates: start: 201211, end: 20131129
  3. NOVALGIN [Concomitant]
     Route: 065
  4. HCT [Concomitant]
     Dosage: ONCE IN MORNING
     Route: 065
  5. KALINOR-BRAUSETABLETTEN [Concomitant]
     Dosage: ONCE IN THE MORNING
     Route: 065
  6. CEFUROXIM [Concomitant]
     Route: 065
  7. ATROVENT [Concomitant]
     Route: 055
  8. TORASEMID [Concomitant]
     Dosage: 1 DF IN THE MORNING AND 0.5 DF IN THE AFTERNOON
     Route: 065
  9. AMLODIPINE [Concomitant]
     Route: 065
  10. CARVEDIGAMMA [Concomitant]
     Route: 065
  11. PENTALONG [Concomitant]
     Route: 065
  12. PANTOZOL [Concomitant]
     Dosage: ONCE IN THE MORNING
     Route: 065
  13. VOMEX A [Concomitant]
     Route: 065
  14. FORADIL [Concomitant]
     Route: 055
  15. SIMVASTATIN [Concomitant]
     Route: 065

REACTIONS (6)
  - Cerebral haemorrhage [Recovering/Resolving]
  - Hypertensive crisis [Unknown]
  - Dizziness [Unknown]
  - Fall [Unknown]
  - Feeling abnormal [Unknown]
  - Laceration [Unknown]
